FAERS Safety Report 6332944-8 (Version None)
Quarter: 2009Q3

REPORT INFORMATION
  Report Type: 
  Country: None (occurrence: None)
  Receive Date: 20090828
  Receipt Date: 20090817
  Transmission Date: 20100115
  Serious: Yes (Other)
  Sender: FDA-Public Use
  Company Number: PHEH2009US09453

PATIENT
  Sex: Male

DRUGS (1)
  1. EXJADE [Suspect]
     Dosage: 1000 DAILY
     Route: 048
     Dates: start: 20090429, end: 20090702

REACTIONS (2)
  - BONE MARROW TRANSPLANT [None]
  - LEUKAEMIA [None]
